FAERS Safety Report 12240768 (Version 2)
Quarter: 2016Q2

REPORT INFORMATION
  Report Type: Spontaneous
  Country: US (occurrence: US)
  Receive Date: 20160406
  Receipt Date: 20160415
  Transmission Date: 20160815
  Serious: No
  Sender: FDA-Public Use
  Company Number: US-TEVA-575237USA

PATIENT
  Sex: Male
  Weight: 55.39 kg

DRUGS (2)
  1. SUCRALFATE. [Suspect]
     Active Substance: SUCRALFATE
     Dosage: 4 TABLETS A DAYS
     Route: 065
  2. VORICONAZOLE. [Suspect]
     Active Substance: VORICONAZOLE
     Indication: FUNGAL INFECTION
     Dosage: 400 MILLIGRAM DAILY;
     Route: 065
     Dates: start: 201503

REACTIONS (6)
  - Gastritis [Unknown]
  - Drug ineffective [Unknown]
  - Weight decreased [Unknown]
  - Abdominal discomfort [Unknown]
  - Weight increased [Unknown]
  - Abdominal pain upper [Unknown]

NARRATIVE: CASE EVENT DATE: 2015
